FAERS Safety Report 7898321-3 (Version None)
Quarter: 2011Q4

REPORT INFORMATION
  Report Type: 
  Country: None (occurrence: None)
  Receive Date: 20111107
  Receipt Date: 20111031
  Transmission Date: 20120403
  Serious: Yes (Hospitalization)
  Sender: FDA-Public Use
  Company Number: US-SANOFI-AVENTIS-2011SA071434

PATIENT
  Age: 72 Year
  Sex: Female

DRUGS (1)
  1. ALLEGRA [Suspect]
     Route: 048
     Dates: start: 20111001

REACTIONS (2)
  - DRUG INEFFECTIVE [None]
  - ATRIAL FIBRILLATION [None]
